FAERS Safety Report 25454503 (Version 1)
Quarter: 2025Q2

REPORT INFORMATION
  Report Type: Spontaneous
  Country: US (occurrence: US)
  Receive Date: 20250619
  Receipt Date: 20250619
  Transmission Date: 20250717
  Serious: No
  Sender: LUPIN
  Company Number: US-LUPIN PHARMACEUTICALS INC.-2025-04975

PATIENT
  Age: 38 Year

DRUGS (4)
  1. TOLVAPTAN [Suspect]
     Active Substance: TOLVAPTAN
     Indication: Congenital cystic kidney disease
     Dosage: 30 MG, QD
  2. TOLVAPTAN [Suspect]
     Active Substance: TOLVAPTAN
  3. TOLVAPTAN [Suspect]
     Active Substance: TOLVAPTAN
     Indication: Congenital cystic kidney disease
     Dosage: 15 MG, QD (8 HOURS LATER AFTER TAKING 30 MG)
  4. TOLVAPTAN [Suspect]
     Active Substance: TOLVAPTAN

REACTIONS (1)
  - Urine osmolarity decreased [Recovered/Resolved]
